FAERS Safety Report 25232771 (Version 1)
Quarter: 2025Q2

REPORT INFORMATION
  Report Type: Spontaneous
  Country: PL (occurrence: PL)
  Receive Date: 20250424
  Receipt Date: 20250424
  Transmission Date: 20250717
  Serious: Yes (Death)
  Sender: BOEHRINGER INGELHEIM
  Company Number: None

PATIENT
  Age: 88 Year
  Sex: Female

DRUGS (3)
  1. PRADAXA [Suspect]
     Active Substance: DABIGATRAN ETEXILATE MESYLATE
     Indication: Atrial fibrillation
     Dates: start: 2022, end: 20250311
  2. DIUVER 5 MG TABLETKI [Concomitant]
     Indication: Cardiac failure
     Dates: start: 2022, end: 20250310
  3. PYRALGIN 500 MG/ML KROPLE DOUSTNE, ROZTW?R [Concomitant]
     Indication: Abdominal pain
     Dates: start: 20250310, end: 20250310

REACTIONS (4)
  - Lower gastrointestinal haemorrhage [Fatal]
  - Upper gastrointestinal haemorrhage [Fatal]
  - Shock haemorrhagic [Fatal]
  - International normalised ratio increased [Fatal]

NARRATIVE: CASE EVENT DATE: 20250311
